FAERS Safety Report 7524881-8 (Version None)
Quarter: 2011Q2

REPORT INFORMATION
  Report Type: 
  Country: None (occurrence: None)
  Receive Date: 20110602
  Receipt Date: 20110602
  Transmission Date: 20111010
  Serious: Yes (Other)
  Sender: FDA-Public Use
  Company Number: None

PATIENT
  Age: 50 Year
  Sex: Female
  Weight: 102.0593 kg

DRUGS (1)
  1. TYLENOL SINUS RAPID RELEASE TYLENOL [Suspect]
     Indication: SINUS CONGESTION
     Dosage: 2 CAPLETS TWICE DAILY PO
     Route: 048
     Dates: start: 20110507, end: 20110530

REACTIONS (8)
  - MALAISE [None]
  - MUSCULAR WEAKNESS [None]
  - ABDOMINAL DISTENSION [None]
  - BEDRIDDEN [None]
  - PRODUCT QUALITY ISSUE [None]
  - NAUSEA [None]
  - SYNCOPE [None]
  - ABDOMINAL PAIN [None]
